FAERS Safety Report 24421520 (Version 1)
Quarter: 2024Q4

REPORT INFORMATION
  Report Type: Spontaneous
  Country: PT (occurrence: PT)
  Receive Date: 20241010
  Receipt Date: 20241010
  Transmission Date: 20250115
  Serious: Yes (Other)
  Sender: AUROBINDO
  Company Number: PT-009507513-2409PRT008005

PATIENT
  Age: 29 Year
  Sex: Female

DRUGS (3)
  1. CARBOPLATIN [Suspect]
     Active Substance: CARBOPLATIN
     Indication: Squamous cell carcinoma of the cervix
     Dosage: UNK
     Route: 065
     Dates: end: 20240726
  2. PACLITAXEL [Suspect]
     Active Substance: PACLITAXEL
     Indication: Squamous cell carcinoma of the cervix
     Dosage: UNK
     Route: 065
     Dates: end: 20240726
  3. PEMBROLIZUMAB [Suspect]
     Active Substance: PEMBROLIZUMAB
     Indication: Squamous cell carcinoma of the cervix
     Dosage: UNK
     Route: 065
     Dates: end: 20240726

REACTIONS (13)
  - Cholestasis [Not Recovered/Not Resolved]
  - Pancreatic stent placement [Unknown]
  - Bile duct stent insertion [Unknown]
  - Biliary dilatation [Unknown]
  - Toxicity to various agents [Not Recovered/Not Resolved]
  - Positron emission tomogram abnormal [Unknown]
  - Pulmonary mass [Unknown]
  - Biliary tract disorder [Unknown]
  - Kidney malrotation [Unknown]
  - Lymphadenopathy [Unknown]
  - Endoscopic retrograde cholangiopancreatography [Unknown]
  - Radiation injury [Unknown]
  - Nodule [Unknown]

NARRATIVE: CASE EVENT DATE: 20240101
